FAERS Safety Report 13475991 (Version 1)
Quarter: 2017Q2

REPORT INFORMATION
  Report Type: Spontaneous
  Country: CH (occurrence: CH)
  Receive Date: 20170425
  Receipt Date: 20170425
  Transmission Date: 20170830
  Serious: Yes (Hospitalization)
  Sender: FDA-Public Use
  Company Number: CH-009507513-1704CHE007617

PATIENT
  Sex: Female
  Weight: 74.8 kg

DRUGS (16)
  1. DUOTRAV [Concomitant]
     Active Substance: TIMOLOL MALEATE\TRAVOPROST
  2. DAFALGAN [Suspect]
     Active Substance: ACETAMINOPHEN
     Dates: end: 20160110
  3. MARCOUMAR [Concomitant]
     Active Substance: PHENPROCOUMON
  4. PEMZEK [Concomitant]
     Dates: start: 20160126
  5. TORSEMIDE. [Concomitant]
     Active Substance: TORSEMIDE
  6. DANCOR [Suspect]
     Active Substance: NICORANDIL
     Dates: end: 20160111
  7. TEMESTA EXPIDET [Concomitant]
     Active Substance: LORAZEPAM
  8. MONURIL [Concomitant]
     Active Substance: FOSFOMYCIN SODIUM
     Dates: start: 20160108, end: 20160108
  9. ATACAND [Concomitant]
     Active Substance: CANDESARTAN CILEXETIL
     Route: 048
     Dates: end: 20160126
  10. ZOLPIDEM TARTRATE. [Concomitant]
     Active Substance: ZOLPIDEM TARTRATE
  11. REMERON [Suspect]
     Active Substance: MIRTAZAPINE
     Dates: start: 201406
  12. ZOLOFT [Suspect]
     Active Substance: SERTRALINE HYDROCHLORIDE
     Dates: start: 2011
  13. ATORVASTATIN CALCIUM. [Suspect]
     Active Substance: ATORVASTATIN CALCIUM
     Dates: end: 20160110
  14. AGOPTON [Concomitant]
     Active Substance: LANSOPRAZOLE
  15. CALCIMAGON D3 [Concomitant]
     Active Substance: CALCIUM\CHOLECALCIFEROL
  16. POTASSIUM CHLORIDE. [Concomitant]
     Active Substance: POTASSIUM CHLORIDE
     Dates: end: 20160110

REACTIONS (4)
  - Blood alkaline phosphatase increased [Recovering/Resolving]
  - Gamma-glutamyltransferase increased [Recovering/Resolving]
  - Alanine aminotransferase increased [Recovering/Resolving]
  - Hepatic enzyme increased [Recovering/Resolving]

NARRATIVE: CASE EVENT DATE: 20160108
